FAERS Safety Report 9780864 (Version 1)
Quarter: 2013Q4

REPORT INFORMATION
  Report Type: Spontaneous
  Country: BR (occurrence: BR)
  Receive Date: 20131224
  Receipt Date: 20131224
  Transmission Date: 20140711
  Serious: Yes (Other)
  Sender: FDA-Public Use
  Company Number: PHHY2013BR149850

PATIENT
  Sex: Male

DRUGS (2)
  1. TEGRETOL [Suspect]
     Dosage: UNK UKN, UNK
  2. DEPAKENE [Suspect]
     Dosage: UNK UKN, UNK

REACTIONS (4)
  - Eczema [Unknown]
  - Hypersensitivity [Unknown]
  - Erythema [Unknown]
  - Rash [Unknown]
